FAERS Safety Report 10707682 (Version 2)
Quarter: 2015Q1

REPORT INFORMATION
  Report Type: Spontaneous
  Country: US (occurrence: US)
  Receive Date: 20150113
  Receipt Date: 20150119
  Transmission Date: 20150721
  Serious: No
  Sender: FDA-Public Use
  Company Number: US-GLAXOSMITHKLINE-US2014GSK046509

PATIENT
  Age: 60 Year
  Sex: Female

DRUGS (1)
  1. ACITRETIN. [Suspect]
     Active Substance: ACITRETIN
     Indication: PRODUCT USED FOR UNKNOWN INDICATION
     Dosage: UNK, U

REACTIONS (8)
  - Skin exfoliation [Unknown]
  - Nasal dryness [Unknown]
  - Skin discomfort [Unknown]
  - Epistaxis [Unknown]
  - Gingival bleeding [Unknown]
  - Drug ineffective [Unknown]
  - Adverse drug reaction [Unknown]
  - Nasal ulcer [Unknown]
